FAERS Safety Report 13745928 (Version 1)
Quarter: 2017Q3

REPORT INFORMATION
  Report Type: Spontaneous
  Country: US (occurrence: US)
  Receive Date: 20170712
  Receipt Date: 20170712
  Transmission Date: 20171127
  Serious: No
  Sender: FDA-Public Use
  Company Number: US-GLAXOSMITHKLINE-US2017106724

PATIENT
  Age: 63 Year
  Sex: Female

DRUGS (1)
  1. MUPIROCIN NASAL OINTMENT [Suspect]
     Active Substance: MUPIROCIN
     Indication: STAPHYLOCOCCAL INFECTION
     Dosage: UNK UNK, TID
     Route: 045
     Dates: start: 201702

REACTIONS (4)
  - Rhinalgia [Recovered/Resolved]
  - Epistaxis [Recovered/Resolved]
  - Drug ineffective [Unknown]
  - Burning sensation [Recovered/Resolved]

NARRATIVE: CASE EVENT DATE: 201702
